FAERS Safety Report 5468088-7 (Version None)
Quarter: 2007Q3

REPORT INFORMATION
  Report Type: 
  Country: None (occurrence: None)
  Receive Date: 20070926
  Receipt Date: 20070921
  Transmission Date: 20080115
  Serious: Yes (Other)
  Sender: FDA-Public Use
  Company Number: US-ASTRAZENECA-2007UW22257

PATIENT
  Age: 59 Year
  Sex: Female
  Weight: 74.8 kg

DRUGS (5)
  1. ARIMIDEX [Suspect]
     Indication: BREAST CANCER FEMALE
     Route: 048
     Dates: start: 20060101
  2. VERAPAMIL [Concomitant]
     Dates: start: 19970101, end: 20070101
  3. FOSAMAX [Concomitant]
  4. NEXIUM [Concomitant]
     Route: 048
  5. MULTIPLE ANTIHYPERTENSIVE MEDICATIONS [Concomitant]

REACTIONS (4)
  - DYSPNOEA [None]
  - HYPERTENSION [None]
  - OEDEMA PERIPHERAL [None]
  - SWELLING FACE [None]
